FAERS Safety Report 6166893-5 (Version None)
Quarter: 2009Q2

REPORT INFORMATION
  Report Type: 
  Country: None (occurrence: None)
  Receive Date: 20090424
  Receipt Date: 20090420
  Transmission Date: 20091009
  Serious: Yes (Hospitalization, Other)
  Sender: FDA-Public Use
  Company Number: B0569969A

PATIENT
  Sex: Male

DRUGS (7)
  1. VALTREX [Suspect]
     Indication: HERPES ZOSTER
     Dosage: 1000MG THREE TIMES PER DAY
     Route: 048
     Dates: start: 20090408, end: 20090412
  2. HYDROCHLOROTHIAZIDE + LOSARTAN POTASSIUM [Concomitant]
     Dosage: 1U PER DAY
     Route: 048
  3. PONSTEL [Concomitant]
     Route: 048
  4. ACEBUTOLOL HYDROCHLORIDE [Concomitant]
     Route: 048
  5. NIFEDIPINE [Concomitant]
     Route: 048
  6. TAVEGYL [Concomitant]
     Route: 048
  7. ALESION [Concomitant]
     Route: 048

REACTIONS (5)
  - ALTERED STATE OF CONSCIOUSNESS [None]
  - APHASIA [None]
  - ENCEPHALOPATHY [None]
  - STUPOR [None]
  - UNRESPONSIVE TO STIMULI [None]
